FAERS Safety Report 6666555-1 (Version None)
Quarter: 2010Q2

REPORT INFORMATION
  Report Type: 
  Country: None (occurrence: None)
  Receive Date: 20100402
  Receipt Date: 20100326
  Transmission Date: 20101027
  Serious: Yes (Hospitalization, Other)
  Sender: FDA-Public Use
  Company Number: US-AMGEN-QUU378583

PATIENT
  Sex: Male

DRUGS (2)
  1. ENBREL [Suspect]
     Indication: PSORIASIS
     Route: 058
     Dates: start: 20080318
  2. UNSPECIFIED TOPICAL PRODUCT [Concomitant]

REACTIONS (3)
  - BLADDER CANCER [None]
  - CORONARY ARTERY OCCLUSION [None]
  - NEPHROLITHIASIS [None]
